FAERS Safety Report 12367029 (Version 2)
Quarter: 2016Q2

REPORT INFORMATION
  Report Type: Spontaneous
  Country: CN (occurrence: CN)
  Receive Date: 20160513
  Receipt Date: 20160520
  Transmission Date: 20160815
  Serious: No
  Sender: FDA-Public Use
  Company Number: CN-009507513-1504CHN017202

PATIENT
  Age: 63 Year
  Sex: Male
  Weight: 77 kg

DRUGS (26)
  1. CEFOXITIN SODIUM [Concomitant]
     Active Substance: CEFOXITIN SODIUM
     Dosage: 2 G, FREQUENCY ST
     Route: 041
     Dates: start: 20150328
  2. DOXOFYLLINE [Concomitant]
     Active Substance: DOXOFYLLINE
     Dosage: 0.2 G, Q12H
     Route: 041
     Dates: start: 20150328
  3. PIPERACILLIN [Concomitant]
     Active Substance: PIPERACILLIN
     Indication: ANTIINFLAMMATORY THERAPY
     Dosage: TOTAL DAILY DOSE: 13.5 G, FREQUENCY: Q8H
     Route: 041
     Dates: start: 20150330
  4. DOXOFYLLINE [Concomitant]
     Active Substance: DOXOFYLLINE
     Indication: ASTHMA
     Dosage: 0.2 G, Q12H
     Route: 041
     Dates: start: 20150326, end: 20150327
  5. AMBROXOL [Concomitant]
     Active Substance: AMBROXOL
     Dosage: TOTAL DAILY DOSE: 60 MG (FREQUENCY: BID)
     Route: 041
     Dates: start: 20150328, end: 20150331
  6. IPRATROPIUM BROMIDE. [Concomitant]
     Active Substance: IPRATROPIUM BROMIDE
     Indication: PRODUCTIVE COUGH
     Dosage: TOTAL DAILY DOSE 4 ML/CC, FREQUENCY BID
     Route: 055
     Dates: start: 20150330
  7. AMBROXOL [Concomitant]
     Active Substance: AMBROXOL
     Indication: PRODUCTIVE COUGH
     Dosage: TOTAL DAILY DOSE: 30 MG (FREQUENCY: BID)
     Route: 055
     Dates: start: 20150330
  8. POTASSIUM CHLORIDE. [Concomitant]
     Active Substance: POTASSIUM CHLORIDE
     Indication: MINERAL SUPPLEMENTATION
     Dosage: 10 ML/CC, FREQUENCY ST
     Route: 041
     Dates: start: 20150328
  9. GEMCITABINE [Concomitant]
     Active Substance: GEMCITABINE\GEMCITABINE HYDROCHLORIDE
     Indication: CHEMOTHERAPY
     Dosage: 1.9 G D 1, 8. TREATMENT CYCLE 1/UNK
     Route: 042
     Dates: start: 20150328, end: 20150404
  10. CISPLATIN. [Concomitant]
     Active Substance: CISPLATIN
     Indication: CHEMOTHERAPY
     Dosage: 50 MG, DAY (D) 1, 2, TREATMENT CYCLE 1/UNK
     Dates: start: 20150328, end: 20150329
  11. DOXOFYLLINE [Concomitant]
     Active Substance: DOXOFYLLINE
     Indication: ANTASTHMATIC DRUG LEVEL THERAPEUTIC
     Dosage: 0.2 G, FREQUENCY ST
     Route: 041
     Dates: start: 20150326, end: 20150327
  12. CEFOXITIN SODIUM [Concomitant]
     Active Substance: CEFOXITIN SODIUM
     Indication: ANTIINFLAMMATORY THERAPY
     Dosage: 2 G, Q12H
     Route: 041
     Dates: start: 20150328, end: 20150329
  13. AMBROXOL [Concomitant]
     Active Substance: AMBROXOL
     Indication: ANTITUSSIVE THERAPY
     Dosage: TOTAL DAILY DOSE: 60 MG (FREQUENCY: BID)
     Route: 041
     Dates: start: 20150326, end: 20150327
  14. FUROSEMIDE. [Concomitant]
     Active Substance: FUROSEMIDE
     Indication: DIURETIC THERAPY
     Dosage: 20 MG, FREQUENCY ST
     Route: 041
     Dates: start: 20150328
  15. EMEND [Suspect]
     Active Substance: APREPITANT
     Indication: PROPHYLAXIS OF NAUSEA AND VOMITING
     Dosage: 125 MG, DAY 1
     Route: 048
     Dates: start: 20150328, end: 20150328
  16. AZASETRON [Concomitant]
     Active Substance: AZASETRON
     Indication: PROPHYLAXIS OF NAUSEA AND VOMITING
     Dosage: 10 MG, FREQUENCY ST
     Route: 041
     Dates: start: 20150328
  17. METOPROLOL. [Concomitant]
     Active Substance: METOPROLOL
     Dosage: 23.75 MG, FREQUENCY ST
     Route: 048
     Dates: start: 20150328
  18. AMBROXOL [Concomitant]
     Active Substance: AMBROXOL
     Dosage: 30 MG, FREQUENCY ST
     Route: 041
     Dates: start: 20150326, end: 20150327
  19. PANTOPRAZOLE [Concomitant]
     Active Substance: PANTOPRAZOLE SODIUM
     Indication: CHRONIC GASTRITIS
     Dosage: 40 MG, FREQUENCY ST
     Route: 041
     Dates: start: 20150328
  20. PANTOPRAZOLE [Concomitant]
     Active Substance: PANTOPRAZOLE SODIUM
     Dosage: 40 MG, FREQUENCY ST
     Route: 041
     Dates: start: 20150329
  21. DEXAMETHASONE. [Concomitant]
     Active Substance: DEXAMETHASONE
     Indication: PROPHYLAXIS OF NAUSEA AND VOMITING
     Dosage: 10 MG, ST
     Route: 041
     Dates: start: 20150328
  22. EMEND [Suspect]
     Active Substance: APREPITANT
     Dosage: 80 MG, QD, DAY 2 AND DAY 3
     Route: 048
     Dates: start: 20150329, end: 20150330
  23. LORATADINE. [Concomitant]
     Active Substance: LORATADINE
     Indication: ANTIALLERGIC THERAPY
     Dosage: 10 MG, QD
     Route: 048
     Dates: start: 20150326, end: 20150327
  24. DIPHENHYDRAMINE. [Concomitant]
     Active Substance: DIPHENHYDRAMINE
     Indication: ANTIALLERGIC THERAPY
     Dosage: 20 MG, ST
     Route: 030
     Dates: start: 20150326, end: 20150326
  25. POTASSIUM CHLORIDE. [Concomitant]
     Active Substance: POTASSIUM CHLORIDE
     Dosage: 10 ML,  FREQUENCY ST
     Route: 041
     Dates: start: 20150405
  26. PIPERACILLIN [Concomitant]
     Active Substance: PIPERACILLIN
     Dosage: 4.5 G, FREQUENCY ST
     Route: 041
     Dates: start: 20150330

REACTIONS (8)
  - White blood cell count decreased [Recovering/Resolving]
  - Hiccups [Not Recovered/Not Resolved]
  - Blood potassium decreased [Recovered/Resolved]
  - White blood cell count increased [Recovered/Resolved]
  - Palpitations [Recovered/Resolved]
  - Constipation [Recovered/Resolved]
  - Blood sodium decreased [Recovered/Resolved]
  - Pyrexia [Recovered/Resolved]

NARRATIVE: CASE EVENT DATE: 20150330
